FAERS Safety Report 13688288 (Version 2)
Quarter: 2018Q3

REPORT INFORMATION
  Report Type: Spontaneous
  Country: US (occurrence: US)
  Receive Date: 20170626
  Receipt Date: 20180723
  Transmission Date: 20181010
  Serious: Yes (Other)
  Sender: FDA-Public Use
  Company Number: US-TEVA-744699USA

PATIENT
  Sex: Female

DRUGS (2)
  1. LAMICTAL XR [Concomitant]
     Active Substance: LAMOTRIGINE
     Dosage: 300 MILLIGRAM DAILY;
  2. LAMOTRIGINE. [Suspect]
     Active Substance: LAMOTRIGINE

REACTIONS (2)
  - Seizure [Recovered/Resolved]
  - Product substitution issue [Unknown]

NARRATIVE: CASE EVENT DATE: 20160211
